FAERS Safety Report 9407798 (Version 1)
Quarter: 2013Q3

REPORT INFORMATION
  Report Type: Spontaneous
  Country: US (occurrence: None)
  Receive Date: 20130717
  Receipt Date: 20130717
  Transmission Date: 20140515
  Serious: No
  Sender: FDA-Public Use
  Company Number: None

PATIENT
  Sex: Female

DRUGS (1)
  1. TECFIDERA STARTER PAK, 120MG AND 240 MG, BIOGEN IDEC [Suspect]
     Indication: MULTIPLE SCLEROSIS
     Route: 048
     Dates: start: 20130525, end: 20130715

REACTIONS (3)
  - Abdominal pain upper [None]
  - Vomiting [None]
  - Diarrhoea [None]
